FAERS Safety Report 7363507-3 (Version None)
Quarter: 2011Q1

REPORT INFORMATION
  Report Type: 
  Country: None (occurrence: None)
  Receive Date: 20110321
  Receipt Date: 20110311
  Transmission Date: 20110831
  Serious: Yes (Hospitalization)
  Sender: FDA-Public Use
  Company Number: NL-MEDIMMUNE-MEDI-0012330

PATIENT
  Sex: Male
  Weight: 6 kg

DRUGS (4)
  1. ACETAMINOPHEN [Concomitant]
     Dates: start: 20110121
  2. AMOXICILLIN [Concomitant]
     Dates: start: 20110121
  3. SYNAGIS [Suspect]
     Route: 030
     Dates: start: 20101001, end: 20110120
  4. SYNAGIS [Suspect]
     Route: 030

REACTIONS (2)
  - DYSPNOEA [None]
  - PYREXIA [None]
